FAERS Safety Report 7620746-1 (Version None)
Quarter: 2011Q3

REPORT INFORMATION
  Report Type: 
  Country: None (occurrence: None)
  Receive Date: 20110719
  Receipt Date: 20110705
  Transmission Date: 20111222
  Serious: Yes (Other)
  Sender: FDA-Public Use
  Company Number: RU-SANOFI-AVENTIS-2011SA044363

PATIENT
  Age: 79 Year
  Sex: Female
  Weight: 68 kg

DRUGS (6)
  1. DRONEDARONE HCL [Suspect]
     Indication: ATRIAL FIBRILLATION
     Route: 048
     Dates: start: 20110113
  2. METOPROLOL TARTRATE [Concomitant]
     Route: 065
     Dates: end: 20110120
  3. FUROSEMIDE [Concomitant]
     Route: 065
  4. DIGOXIN [Concomitant]
     Route: 065
     Dates: end: 20110211
  5. ASPIRIN [Concomitant]
     Route: 065
  6. CAPTOPRIL [Concomitant]
     Route: 065

REACTIONS (1)
  - CARDIAC FAILURE [None]
